FAERS Safety Report 7960004-9 (Version None)
Quarter: 2011Q4

REPORT INFORMATION
  Report Type: 
  Country: None (occurrence: None)
  Receive Date: 20111206
  Receipt Date: 20111123
  Transmission Date: 20120403
  Serious: Yes (Hospitalization)
  Sender: FDA-Public Use
  Company Number: PHHO2011RO15159

PATIENT
  Sex: Female
  Weight: 86 kg

DRUGS (14)
  1. BLINDED ALISKIREN [Suspect]
     Indication: CARDIAC FAILURE
     Dosage: CODE NOT BROKEN
     Route: 048
     Dates: start: 20110602
  2. HYDROCHLOROTHIAZIDE [Concomitant]
     Indication: CARDIAC FAILURE CHRONIC
     Dosage: 25 MG, QD
     Route: 048
     Dates: start: 20110816
  3. TROMBOSTOP [Concomitant]
     Indication: ATRIAL FIBRILLATION
     Dosage: 2 MG, QD
     Route: 048
     Dates: start: 20110309
  4. ENALAPRIL MALEATE [Suspect]
     Indication: CARDIAC FAILURE
  5. ACENOCOUMAROL [Concomitant]
     Indication: ATRIAL FIBRILLATION
     Dosage: 2 MG, BID
     Route: 048
     Dates: start: 20110309, end: 20111030
  6. ALISKIREN [Suspect]
     Indication: CARDIAC FAILURE
  7. BLINDED NO TREATMENT RECEIVED [Suspect]
     Indication: CARDIAC FAILURE
     Dosage: CODE NOT BROKEN
     Route: 048
     Dates: start: 20110602
  8. SPIRONOLACTONE [Concomitant]
     Indication: CARDIAC FAILURE CHRONIC
     Dosage: 20 MG, BID
     Route: 048
     Dates: start: 20101018, end: 20111030
  9. DILTIAZEM HCL [Concomitant]
     Indication: ISCHAEMIC CARDIOMYOPATHY
     Dosage: 60 MG, TID
     Route: 048
     Dates: start: 20100906
  10. GLYBURIDE [Concomitant]
     Indication: DIABETES MELLITUS
     Dosage: 180 MG, BID
     Route: 048
     Dates: start: 20110309
  11. SIOFOR [Concomitant]
     Indication: DIABETES MELLITUS
     Dosage: 850 MG, BID
     Route: 048
     Dates: start: 20110309
  12. ENALAPRIL MALEATE [Suspect]
     Indication: CARDIAC FAILURE
     Dosage: CODE NOT BROKEN
     Route: 048
     Dates: start: 20110602
  13. FUROSEMIDE [Concomitant]
     Indication: CARDIAC FAILURE CHRONIC
     Dosage: 40 MG, QID
     Route: 048
     Dates: start: 20110412
  14. INDAPAMIDE [Concomitant]
     Indication: CARDIAC FAILURE CHRONIC
     Dosage: 1.25 MG, QD
     Route: 048
     Dates: start: 20110309, end: 20110830

REACTIONS (3)
  - CONCOMITANT DISEASE PROGRESSION [None]
  - CHRONIC RESPIRATORY FAILURE [None]
  - CHRONIC OBSTRUCTIVE PULMONARY DISEASE [None]
